FAERS Safety Report 9337985 (Version 1)
Quarter: 2013Q2

REPORT INFORMATION
  Report Type: Spontaneous
  Country: GB (occurrence: GB)
  Receive Date: 20130610
  Receipt Date: 20130610
  Transmission Date: 20140414
  Serious: Yes (Other)
  Sender: FDA-Public Use
  Company Number: GB-MYLANLABS-2013S1011809

PATIENT
  Age: 64 None
  Sex: Female
  Weight: 76 kg

DRUGS (10)
  1. ATORVASTATIN [Suspect]
     Indication: PRODUCT USED FOR UNKNOWN INDICATION
  2. AMLODIPINE [Concomitant]
     Indication: PRODUCT USED FOR UNKNOWN INDICATION
  3. LIPITOR [Concomitant]
     Indication: PRODUCT USED FOR UNKNOWN INDICATION
  4. BENDROFLUMETHIAZIDE [Concomitant]
     Indication: BLOOD PRESSURE
  5. JANUVIA [Concomitant]
     Indication: PRODUCT USED FOR UNKNOWN INDICATION
  6. METFORMIN [Concomitant]
     Indication: PRODUCT USED FOR UNKNOWN INDICATION
  7. ORLISTAT [Concomitant]
     Indication: WEIGHT DECREASED
  8. PANTOPRAZOLE [Concomitant]
     Indication: HIATUS HERNIA
  9. PANTOPRAZOLE [Concomitant]
     Indication: GASTROOESOPHAGEAL REFLUX DISEASE
  10. TRAMACET [Concomitant]
     Indication: OSTEOARTHRITIS

REACTIONS (11)
  - Cough [Recovered/Resolved]
  - Product taste abnormal [Unknown]
  - Local swelling [Recovered/Resolved]
  - Muscle tightness [Recovered/Resolved]
  - Product coating issue [Unknown]
  - Product quality issue [Unknown]
  - Product size issue [Unknown]
  - Product substitution issue [Unknown]
  - Swollen tongue [Recovered/Resolved]
  - Pharyngeal oedema [Recovered/Resolved]
  - Paraesthesia oral [Recovered/Resolved]
